FAERS Safety Report 11800363 (Version 2)
Quarter: 2015Q4

REPORT INFORMATION
  Report Type: Spontaneous
  Country: US (occurrence: US)
  Receive Date: 20151203
  Receipt Date: 20151231
  Transmission Date: 20160305
  Serious: Yes (Other)
  Sender: FDA-Public Use
  Company Number: US-CELGENEUS-USA-2015117592

PATIENT
  Sex: Female
  Weight: 84.9 kg

DRUGS (3)
  1. REVLIMID [Suspect]
     Active Substance: LENALIDOMIDE
     Indication: PLASMA CELL MYELOMA
     Route: 048
     Dates: start: 200811
  2. REVLIMID [Suspect]
     Active Substance: LENALIDOMIDE
     Dosage: 15MG-25MG
     Route: 048
     Dates: start: 201006
  3. REVLIMID [Suspect]
     Active Substance: LENALIDOMIDE
     Route: 048
     Dates: start: 20150811

REACTIONS (5)
  - Dizziness [Unknown]
  - Asthenia [Unknown]
  - Cough [Unknown]
  - Sinus congestion [Not Recovered/Not Resolved]
  - Oropharyngeal pain [Not Recovered/Not Resolved]
